FAERS Safety Report 13419756 (Version 2)
Quarter: 2017Q2

REPORT INFORMATION
  Report Type: Spontaneous
  Country: US (occurrence: US)
  Receive Date: 20170407
  Receipt Date: 20170418
  Transmission Date: 20170830
  Serious: No
  Sender: FDA-Public Use
  Company Number: US-PFIZER INC-2017149512

PATIENT
  Age: 68 Year
  Sex: Female

DRUGS (3)
  1. AZULFIDINE [Suspect]
     Active Substance: SULFASALAZINE
     Dosage: UNK
     Dates: start: 201610, end: 201611
  2. RAYOS [Suspect]
     Active Substance: PREDNISONE
     Dosage: UNK
     Dates: start: 201612, end: 201701
  3. ENBREL [Suspect]
     Active Substance: ETANERCEPT
     Dosage: UNK
     Dates: start: 201612, end: 201701

REACTIONS (1)
  - Treatment failure [Unknown]
